FAERS Safety Report 4748360-6 (Version None)
Quarter: 2005Q3

REPORT INFORMATION
  Report Type: 
  Country: None (occurrence: None)
  Receive Date: 20050818
  Receipt Date: 20050805
  Transmission Date: 20060218
  Serious: Yes (Hospitalization, Disabling)
  Sender: FDA-Public Use
  Company Number: NO-MERCK-0508NOR00005

PATIENT
  Age: 55 Year
  Sex: Female

DRUGS (4)
  1. VIOXX [Suspect]
     Indication: PSORIATIC ARTHROPATHY
     Route: 048
     Dates: start: 20000101, end: 20040901
  2. LEVOTHYROXINE SODIUM [Concomitant]
     Route: 048
  3. TIBOLONE [Concomitant]
     Route: 065
  4. SIMVASTATIN [Concomitant]
     Route: 048

REACTIONS (5)
  - BALANCE DISORDER [None]
  - DEAFNESS UNILATERAL [None]
  - DIZZINESS [None]
  - MENIERE'S DISEASE [None]
  - VERTIGO [None]
